FAERS Safety Report 7075525-3 (Version None)
Quarter: 2010Q4

REPORT INFORMATION
  Report Type: 
  Country: None (occurrence: None)
  Receive Date: 20101030
  Receipt Date: 20100924
  Transmission Date: 20110411
  Serious: No
  Sender: FDA-Public Use
  Company Number: US-WYE-H17770810

PATIENT
  Sex: Male
  Weight: 95.34 kg

DRUGS (4)
  1. PRISTIQ [Suspect]
     Indication: DEPRESSION
     Dates: start: 20100801
  2. KLONOPIN [Concomitant]
  3. NAPROXEN [Concomitant]
  4. DARVOCET-N 100 [Concomitant]

REACTIONS (12)
  - ABDOMINAL DISCOMFORT [None]
  - ABNORMAL SENSATION IN EYE [None]
  - BLOOD PRESSURE INCREASED [None]
  - FEELING ABNORMAL [None]
  - HEADACHE [None]
  - HYPERHIDROSIS [None]
  - HYPOAESTHESIA [None]
  - IRRITABILITY [None]
  - MUSCLE STRAIN [None]
  - NAUSEA [None]
  - PARAESTHESIA [None]
  - VISION BLURRED [None]
